FAERS Safety Report 14783203 (Version 1)
Quarter: 2018Q2

REPORT INFORMATION
  Report Type: Spontaneous
  Country: US (occurrence: US)
  Receive Date: 20180420
  Receipt Date: 20180420
  Transmission Date: 20180711
  Serious: No
  Sender: FDA-Public Use
  Company Number: US-BAUSCH-BL-2017-031227

PATIENT
  Sex: Female

DRUGS (1)
  1. ARESTIN [Suspect]
     Active Substance: MINOCYCLINE HYDROCHLORIDE
     Indication: PERIODONTAL DISEASE
     Route: 065
     Dates: start: 20171103, end: 20171103

REACTIONS (3)
  - Conjunctivitis [Unknown]
  - Drug hypersensitivity [Unknown]
  - Acne [Unknown]

NARRATIVE: CASE EVENT DATE: 20171103
